FAERS Safety Report 20410168 (Version 3)
Quarter: 2022Q4

REPORT INFORMATION
  Report Type: Report from Study
  Country: US (occurrence: US)
  Receive Date: 20220201
  Receipt Date: 20221117
  Transmission Date: 20230112
  Serious: Yes (Hospitalization, Other)
  Sender: FDA-Public Use
  Company Number: US-TAKEDA-US201839271

PATIENT
  Age: 66 Year
  Sex: Male
  Weight: 93.878 kg

DRUGS (73)
  1. PARATHYROID HORMONE [Suspect]
     Active Substance: PARATHYROID HORMONE
     Indication: Hypoparathyroidism
     Dosage: 50 MICROGRAM, QD
     Route: 065
     Dates: start: 20151223, end: 20160129
  2. PARATHYROID HORMONE [Suspect]
     Active Substance: PARATHYROID HORMONE
     Indication: Hypoparathyroidism
     Dosage: 50 MICROGRAM, QD
     Route: 065
     Dates: start: 20151223, end: 20160129
  3. PARATHYROID HORMONE [Suspect]
     Active Substance: PARATHYROID HORMONE
     Indication: Hypoparathyroidism
     Dosage: 50 MICROGRAM, QD
     Route: 065
     Dates: start: 20151223, end: 20160129
  4. PARATHYROID HORMONE [Suspect]
     Active Substance: PARATHYROID HORMONE
     Dosage: 75 MICROGRAM, QD
     Route: 065
     Dates: start: 20160129, end: 20160824
  5. PARATHYROID HORMONE [Suspect]
     Active Substance: PARATHYROID HORMONE
     Dosage: 75 MICROGRAM, QD
     Route: 065
     Dates: start: 20160129, end: 20160824
  6. PARATHYROID HORMONE [Suspect]
     Active Substance: PARATHYROID HORMONE
     Dosage: 75 MICROGRAM, QD
     Route: 065
     Dates: start: 20160129, end: 20160824
  7. PARATHYROID HORMONE [Suspect]
     Active Substance: PARATHYROID HORMONE
     Dosage: 50 MICROGRAM, QD
     Route: 065
     Dates: start: 20160824, end: 20180822
  8. PARATHYROID HORMONE [Suspect]
     Active Substance: PARATHYROID HORMONE
     Dosage: 50 MICROGRAM, QD
     Route: 065
     Dates: start: 20160824, end: 20180822
  9. PARATHYROID HORMONE [Suspect]
     Active Substance: PARATHYROID HORMONE
     Dosage: 50 MICROGRAM, QD
     Route: 065
     Dates: start: 20160824, end: 20180822
  10. PARATHYROID HORMONE [Suspect]
     Active Substance: PARATHYROID HORMONE
     Dosage: 25 MICROGRAM, QD
     Route: 065
     Dates: start: 20180822, end: 201909
  11. PARATHYROID HORMONE [Suspect]
     Active Substance: PARATHYROID HORMONE
     Dosage: 25 MICROGRAM, QD
     Route: 065
     Dates: start: 20180822, end: 201909
  12. PARATHYROID HORMONE [Suspect]
     Active Substance: PARATHYROID HORMONE
     Dosage: 25 MICROGRAM, QD
     Route: 065
     Dates: start: 20180822, end: 201909
  13. PRASTERONE [Concomitant]
     Active Substance: PRASTERONE
     Dosage: UNK
     Dates: start: 20120606, end: 20190215
  14. ERYTHROMYCIN [Concomitant]
     Active Substance: ERYTHROMYCIN
     Indication: Eyelid disorder
     Dosage: UNK
     Dates: start: 20120430
  15. POLYCARBOPHIL [Concomitant]
     Active Substance: POLYCARBOPHIL
     Indication: Crohn^s disease
     Dosage: UNK
     Dates: start: 20140715
  16. TRAZODONE HCL [Concomitant]
     Active Substance: TRAZODONE HYDROCHLORIDE
     Indication: Depression
     Dosage: UNK
     Dates: start: 20140715, end: 20190304
  17. OFLOXACIN [Concomitant]
     Active Substance: OFLOXACIN
     Indication: Eyelid disorder
     Dosage: UNK
     Dates: start: 20140724
  18. DULOXETINE [Concomitant]
     Active Substance: DULOXETINE
     Indication: Autoimmune thyroiditis
     Dosage: UNK
     Dates: start: 20141203
  19. DULOXETINE [Concomitant]
     Active Substance: DULOXETINE
     Indication: Depression
     Dosage: UNK
     Dates: start: 20171201
  20. METOPROLOL [Concomitant]
     Active Substance: METOPROLOL
     Indication: Hypertension
     Dosage: UNK
     Dates: start: 20150814, end: 20190215
  21. KETOCONAZOLE [Concomitant]
     Active Substance: KETOCONAZOLE
     Indication: Seborrhoeic dermatitis
     Dosage: UNK
     Dates: start: 20150320, end: 20190215
  22. VITAMINS [Concomitant]
     Active Substance: VITAMINS
  23. URSODIOL [Concomitant]
     Active Substance: URSODIOL
     Indication: Amnesia
     Dosage: UNK
     Dates: start: 20110915, end: 20150908
  24. URSODIOL [Concomitant]
     Active Substance: URSODIOL
     Dosage: UNK
     Dates: start: 20150908
  25. BUPROPION [Concomitant]
     Active Substance: BUPROPION
     Indication: Cholangitis sclerosing
     Dosage: UNK
     Dates: start: 20130503, end: 20160318
  26. BUPROPION [Concomitant]
     Active Substance: BUPROPION
     Dosage: UNK
     Dates: start: 20160318, end: 20190401
  27. APIXABAN [Concomitant]
     Active Substance: APIXABAN
     Indication: Anticoagulant therapy
     Dosage: UNK
     Dates: start: 20160421, end: 20180615
  28. LEVOTHYROXINE [Concomitant]
     Active Substance: LEVOTHYROXINE
     Indication: Hypothyroidism
     Dosage: UNK
     Dates: start: 20140715, end: 20141016
  29. LEVOTHYROXINE [Concomitant]
     Active Substance: LEVOTHYROXINE
     Dosage: UNK
     Dates: start: 20160504
  30. MESALAMINE [Concomitant]
     Active Substance: MESALAMINE
     Indication: Crohn^s disease
     Dosage: UNK
     Dates: start: 20150901
  31. MESALAMINE [Concomitant]
     Active Substance: MESALAMINE
     Dosage: UNK
     Route: 048
     Dates: start: 20170801
  32. ACETAMINOPHEN [Concomitant]
     Active Substance: ACETAMINOPHEN
     Dosage: UNK
     Route: 048
     Dates: start: 20171121, end: 20180928
  33. ACETAMINOPHEN [Concomitant]
     Active Substance: ACETAMINOPHEN
     Dosage: UNK
     Route: 048
     Dates: start: 20181022
  34. LORAZEPAM [Concomitant]
     Active Substance: LORAZEPAM
     Indication: Anxiety
     Dosage: UNK
     Route: 048
     Dates: start: 20171026, end: 20180723
  35. LORAZEPAM [Concomitant]
     Active Substance: LORAZEPAM
     Dosage: UNK
     Route: 048
     Dates: start: 20190404
  36. HYDROCORTISONE [Concomitant]
     Active Substance: HYDROCORTISONE
     Indication: Actinic keratosis
     Dosage: UNK
     Dates: start: 20131210, end: 20150704
  37. HYDROCORTISONE [Concomitant]
     Active Substance: HYDROCORTISONE
     Dosage: UNK
     Dates: start: 20160527, end: 20170707
  38. HYDROCORTISONE [Concomitant]
     Active Substance: HYDROCORTISONE
     Dosage: UNK
     Route: 054
     Dates: start: 20170707, end: 20190215
  39. PREDNISONE [Concomitant]
     Active Substance: PREDNISONE
     Indication: Actinic keratosis
     Dosage: UNK
     Dates: start: 20130322, end: 20150105
  40. PREDNISONE [Concomitant]
     Active Substance: PREDNISONE
     Dosage: UNK
     Dates: start: 20160811, end: 20161006
  41. WARFARIN [Concomitant]
     Active Substance: WARFARIN
     Dosage: UNK
     Dates: start: 20140605, end: 20150701
  42. VITAMIN B COMPLEX [Concomitant]
     Active Substance: CYANOCOBALAMIN\DEXPANTHENOL\NIACINAMIDE\PYRIDOXINE HYDROCHLORIDE\RIBOFLAVIN 5^-PHOSPHATE SODIUM\THIA
     Dosage: UNK
     Dates: start: 20140505, end: 20150908
  43. CYANOCOBALAMIN [Concomitant]
     Active Substance: CYANOCOBALAMIN
     Dosage: UNK
     Dates: start: 20140505, end: 20150908
  44. CHOLECALCIFEROL [Concomitant]
     Active Substance: CHOLECALCIFEROL
     Dosage: UNK
     Dates: start: 20140502, end: 20140918
  45. POTASSIUM [Concomitant]
     Active Substance: POTASSIUM
     Dosage: UNK
     Dates: start: 20140502, end: 20150908
  46. SERTRALINE [Concomitant]
     Active Substance: SERTRALINE HYDROCHLORIDE
     Indication: Amnesia
     Dosage: UNK
     Dates: start: 20130820, end: 20140731
  47. ALBUTEROL [Concomitant]
     Active Substance: ALBUTEROL
     Indication: Asthma
     Dosage: UNK
     Dates: start: 20121126, end: 20160908
  48. GLUCOSAMINE [Concomitant]
     Active Substance: GLUCOSAMINE
     Indication: Actinic keratosis
     Dosage: UNK
     Dates: start: 20150105, end: 20150227
  49. CINNAMON [Concomitant]
     Active Substance: CINNAMON
     Indication: Prophylaxis
     Dosage: UNK
     Dates: start: 20140725, end: 20150908
  50. SULFAMETHOXAZOLE\TRIMETHOPRIM [Concomitant]
     Active Substance: SULFAMETHOXAZOLE\TRIMETHOPRIM
     Indication: Prophylaxis
     Dosage: UNK
     Dates: start: 20141016, end: 20150227
  51. NYSTATIN [Concomitant]
     Active Substance: NYSTATIN
     Indication: Tinea pedis
     Dosage: UNK
     Dates: start: 20150707, end: 20151020
  52. COSYNTROPIN [Concomitant]
     Active Substance: COSYNTROPIN
     Indication: Autoimmune thyroiditis
     Dosage: UNK
     Dates: start: 20151231, end: 20160318
  53. TRIAMCINOLONE [Concomitant]
     Active Substance: TRIAMCINOLONE
     Indication: Seborrhoeic dermatitis
     Dosage: UNK
     Dates: start: 20160415, end: 20161202
  54. DIPHENHYDRAMINE [Concomitant]
     Active Substance: DIPHENHYDRAMINE
     Dosage: UNK
     Dates: start: 20160811, end: 20161006
  55. OMEPRAZOLE [Concomitant]
     Active Substance: OMEPRAZOLE
     Indication: Chronic gastritis
     Dosage: UNK
     Dates: start: 20161130, end: 20170619
  56. CHLORZOXAZONE [Concomitant]
     Active Substance: CHLORZOXAZONE
     Dosage: UNK
     Route: 048
     Dates: start: 20180214, end: 20180404
  57. PROCTOZONE HC [Concomitant]
     Active Substance: HYDROCORTISONE
     Indication: Crohn^s disease
     Dosage: UNK
     Route: 061
     Dates: start: 20170707, end: 20170707
  58. LEVAQUIN [Concomitant]
     Active Substance: LEVOFLOXACIN
     Indication: Pneumonia
     Dosage: UNK
     Route: 048
     Dates: start: 20180209, end: 20180213
  59. PANTOPRAZOLE [Concomitant]
     Active Substance: PANTOPRAZOLE
     Indication: Cholangitis acute
     Dosage: UNK
     Route: 048
     Dates: start: 20180615, end: 20180913
  60. RIVAROXABAN [Concomitant]
     Active Substance: RIVAROXABAN
     Indication: Prophylaxis
     Dosage: UNK
     Route: 048
     Dates: start: 20180615
  61. GABAPENTIN [Concomitant]
     Active Substance: GABAPENTIN
     Indication: Cholecystectomy
     Dosage: UNK
     Dates: start: 20181001, end: 20181015
  62. GALANTAMINE [Concomitant]
     Active Substance: GALANTAMINE
     Dosage: UNK
     Route: 048
     Dates: start: 20180918, end: 20190215
  63. TRAMADOL [Concomitant]
     Active Substance: TRAMADOL
     Indication: Pain
     Dosage: UNK
     Route: 048
     Dates: start: 20181001, end: 20181008
  64. ZOSYN [Concomitant]
     Active Substance: PIPERACILLIN SODIUM\TAZOBACTAM SODIUM
     Dosage: UNK
     Route: 042
     Dates: start: 20200118, end: 20200121
  65. CEFEPIME [Concomitant]
     Active Substance: CEFEPIME HYDROCHLORIDE
     Dosage: UNK
     Route: 042
     Dates: start: 20210505, end: 20210519
  66. OXYCODONE [Concomitant]
     Active Substance: OXYCODONE
     Indication: Cholangitis
     Dosage: UNK
     Route: 048
     Dates: start: 20210513, end: 20210518
  67. OXYCODONE [Concomitant]
     Active Substance: OXYCODONE
     Dosage: UNK
     Route: 048
     Dates: start: 20210928, end: 20211002
  68. LEVOFLOXACIN [Concomitant]
     Active Substance: LEVOFLOXACIN
     Indication: Cholangitis
     Dosage: UNK
     Route: 048
     Dates: start: 20210708, end: 20210712
  69. CIPROFLOXACIN [Concomitant]
     Active Substance: CIPROFLOXACIN
     Indication: Cholangitis
     Dosage: UNK
     Route: 048
     Dates: start: 20210928, end: 20211005
  70. XARELTO [Concomitant]
     Active Substance: RIVAROXABAN
     Dosage: UNK
     Route: 048
     Dates: start: 20210512
  71. ERTAPENEM [Concomitant]
     Active Substance: ERTAPENEM
     Indication: Sepsis
     Dosage: UNK
     Dates: start: 20180611, end: 20180624
  72. VANCOMYCIN [Concomitant]
     Active Substance: VANCOMYCIN
     Indication: Sepsis
     Dosage: UNK
     Dates: start: 20180609, end: 20180611
  73. AMOXICILLIN AND CLAVULANATE POTASSIUM [Concomitant]
     Active Substance: AMOXICILLIN\CLAVULANATE POTASSIUM
     Indication: Sepsis
     Dosage: UNK
     Route: 065
     Dates: start: 20180615, end: 2018

REACTIONS (2)
  - Cholangitis acute [Recovered/Resolved]
  - Sepsis [Recovered/Resolved]

NARRATIVE: CASE EVENT DATE: 20180609
